FAERS Safety Report 4488564-3 (Version None)
Quarter: 2004Q4

REPORT INFORMATION
  Report Type: 
  Country: None (occurrence: None)
  Receive Date: 20041028
  Receipt Date: 20041028
  Transmission Date: 20050328
  Serious: Yes (Other)
  Sender: FDA-Public Use
  Company Number: None

PATIENT
  Age: 40 Year
  Sex: Female
  Weight: 104.3273 kg

DRUGS (2)
  1. ULTRAVIST 300 [Suspect]
     Indication: ABDOMINAL PAIN
     Dosage: 100 ML IV
     Route: 042
  2. ULTRAVIST 300 [Suspect]
     Indication: NEPHRITIS
     Dosage: 100 ML IV
     Route: 042

REACTIONS (3)
  - DYSPNOEA [None]
  - PRURITUS [None]
  - URTICARIA [None]
